FAERS Safety Report 8429553-3 (Version None)
Quarter: 2012Q2

REPORT INFORMATION
  Report Type: 
  Country: None (occurrence: None)
  Receive Date: 20120612
  Receipt Date: 20120531
  Transmission Date: 20120825
  Serious: Yes (Other)
  Sender: FDA-Public Use
  Company Number: US-FRI-1000030970

PATIENT
  Age: 44 Year
  Sex: Male

DRUGS (7)
  1. VIIBRYD [Suspect]
     Dosage: 40 MG
     Route: 048
     Dates: start: 20120101, end: 20120401
  2. VIIBRYD [Suspect]
     Dosage: 40 MG
     Route: 048
     Dates: start: 20120401
  3. VIIBRYD [Suspect]
     Indication: POST-TRAUMATIC STRESS DISORDER
     Dosage: 20 MG
     Route: 048
     Dates: start: 20120101, end: 20120101
  4. VIIBRYD [Suspect]
     Indication: ANXIETY
     Dosage: 10 MG
     Route: 048
     Dates: start: 20120201, end: 20120101
  5. VIIBRYD [Suspect]
  6. LISINOPRIL [Concomitant]
     Indication: HYPERTENSION
  7. HYDROCHLOROTHIAZIDE [Concomitant]
     Indication: HYPERTENSION

REACTIONS (5)
  - BLOOD PRESSURE INCREASED [None]
  - OFF LABEL USE [None]
  - MUSCLE SPASMS [None]
  - INSOMNIA [None]
  - MUSCLE TWITCHING [None]
